FAERS Safety Report 8531314-1 (Version None)
Quarter: 2012Q3

REPORT INFORMATION
  Report Type: 
  Country: None (occurrence: None)
  Receive Date: 20120710
  Receipt Date: 20120627
  Transmission Date: 20120928
  Serious: Yes (Other)
  Sender: FDA-Public Use
  Company Number: 2011MA001489

PATIENT
  Sex: Male

DRUGS (17)
  1. GUIATUSS [Concomitant]
  2. NASONEX [Concomitant]
  3. ALLERX [Concomitant]
  4. DOXYCYCLINE HCL [Concomitant]
  5. ADDERALL 5 [Concomitant]
  6. CIALIS [Concomitant]
  7. METHYLPREDNISOLONE [Concomitant]
  8. METOCLOPRAMIDE [Suspect]
     Dosage: 10 MG; ;PO
     Route: 048
     Dates: start: 20060125, end: 20100630
  9. DIOVAN [Concomitant]
  10. ATENOLOL [Concomitant]
  11. AVELOX [Concomitant]
  12. NEXIUM [Concomitant]
  13. RYNATUSS [Concomitant]
  14. LISINOPRIL [Concomitant]
  15. HYDROCODONE BITARTRATE [Concomitant]
  16. AMOXICILLIN [Concomitant]
  17. CLINDAMYCIN [Concomitant]

REACTIONS (8)
  - DYSKINESIA [None]
  - DYSTONIA [None]
  - EMOTIONAL DISORDER [None]
  - TREMOR [None]
  - ECONOMIC PROBLEM [None]
  - EXTRAPYRAMIDAL DISORDER [None]
  - TARDIVE DYSKINESIA [None]
  - AKATHISIA [None]
